FAERS Safety Report 6703290-5 (Version None)
Quarter: 2010Q2

REPORT INFORMATION
  Report Type: 
  Country: None (occurrence: None)
  Receive Date: 20100430
  Receipt Date: 20100427
  Transmission Date: 20101027
  Serious: Yes (Death)
  Sender: FDA-Public Use
  Company Number: JP-GENZYME-THYM-1001495

PATIENT
  Sex: Male
  Weight: 50 kg

DRUGS (2)
  1. THYMOGLOBULIN [Suspect]
     Indication: EPSTEIN-BARR VIRUS INFECTION
     Dosage: 175 MG, QD
     Route: 042
     Dates: start: 20100408, end: 20100409
  2. THYMOGLOBULIN [Suspect]
     Indication: HISTIOCYTOSIS HAEMATOPHAGIC

REACTIONS (1)
  - CEREBRAL HAEMORRHAGE [None]
